FAERS Safety Report 19960568 (Version 7)
Quarter: 2025Q1

REPORT INFORMATION
  Report Type: Report from Study
  Country: US (occurrence: US)
  Receive Date: 20211015
  Receipt Date: 20250219
  Transmission Date: 20250409
  Serious: No
  Sender: TAKEDA
  Company Number: US-TAKEDA-2021TUS063143

PATIENT
  Sex: Male

DRUGS (16)
  1. IXAZOMIB [Suspect]
     Active Substance: IXAZOMIB
     Indication: Plasma cell myeloma
  2. IXAZOMIB [Suspect]
     Active Substance: IXAZOMIB
     Indication: Plasma cell myeloma in remission
  3. REVLIMID [Concomitant]
     Active Substance: LENALIDOMIDE
  4. BACLOFEN [Concomitant]
     Active Substance: BACLOFEN
  5. FLUCONAZOLE [Concomitant]
     Active Substance: FLUCONAZOLE
  6. LORAZEPAM [Concomitant]
     Active Substance: LORAZEPAM
  7. MONTELUKAST SODIUM [Concomitant]
     Active Substance: MONTELUKAST SODIUM
  8. ACTHIB [Concomitant]
     Active Substance: HAEMOPHILUS B CONJUGATE VACCINE (TETANUS TOXOID CONJUGATE)\HAEMOPHILUS INFLUENZAE TYPE B STRAIN 1482
  9. ACYCLOVIR [Concomitant]
     Active Substance: ACYCLOVIR
  10. ADVAIR HFA [Concomitant]
     Active Substance: FLUTICASONE PROPIONATE\SALMETEROL XINAFOATE
  11. ALBUTEROL SULFATE [Concomitant]
     Active Substance: ALBUTEROL SULFATE
  12. BENZONATATE [Concomitant]
     Active Substance: BENZONATATE
  13. MIRTAZAPINE [Concomitant]
     Active Substance: MIRTAZAPINE
  14. OXYCODONE [Concomitant]
     Active Substance: OXYCODONE
  15. SERTRALINE [Concomitant]
     Active Substance: SERTRALINE HYDROCHLORIDE
  16. TACROLIMUS [Concomitant]
     Active Substance: TACROLIMUS

REACTIONS (5)
  - Fluid retention [Not Recovered/Not Resolved]
  - Hypoaesthesia [Unknown]
  - Peripheral swelling [Not Recovered/Not Resolved]
  - Paraesthesia [Not Recovered/Not Resolved]
  - Product dose omission issue [Unknown]
